FAERS Safety Report 7417874-2 (Version None)
Quarter: 2011Q2

REPORT INFORMATION
  Report Type: 
  Country: None (occurrence: None)
  Receive Date: 20110415
  Receipt Date: 20110407
  Transmission Date: 20111010
  Serious: Yes (Death)
  Sender: FDA-Public Use
  Company Number: EG-SANOFI-AVENTIS-2011SA021808

PATIENT
  Age: 65 Year
  Sex: Female

DRUGS (3)
  1. INSULIN GLARGINE [Suspect]
     Route: 058
     Dates: end: 20110315
  2. INSULIN GLARGINE [Suspect]
     Indication: DIABETES MELLITUS
     Route: 058
     Dates: start: 20100524
  3. INSULIN GLARGINE [Suspect]
     Route: 058

REACTIONS (1)
  - CEREBRAL THROMBOSIS [None]
